FAERS Safety Report 24648263 (Version 3)
Quarter: 2024Q4

REPORT INFORMATION
  Report Type: Spontaneous
  Country: JP (occurrence: JP)
  Receive Date: 20241121
  Receipt Date: 20241212
  Transmission Date: 20250114
  Serious: Yes (Hospitalization, Other)
  Sender: BAYER HEALTHCARE PHARMACEUTICALS INC.
  Company Number: JP-BAYER-2024A165622

PATIENT
  Age: 8 Decade
  Sex: Male

DRUGS (1)
  1. XOFIGO [Suspect]
     Active Substance: RADIUM RA-223 DICHLORIDE
     Indication: Hormone-refractory prostate cancer
     Dosage: 55KBQ/KG EACH TIME, TOTAL OF 5 DOSAGES PRIOR TO THE EVENT
     Route: 042
     Dates: start: 20240625, end: 20241022

REACTIONS (5)
  - Haemoglobin decreased [Recovered/Resolved]
  - Metastases to bone [None]
  - Pancytopenia [None]
  - Prostate cancer [Not Recovered/Not Resolved]
  - Prostatic specific antigen increased [None]

NARRATIVE: CASE EVENT DATE: 20241119
